FAERS Safety Report 4485339-6 (Version None)
Quarter: 2004Q4

REPORT INFORMATION
  Report Type: 
  Country: None (occurrence: None)
  Receive Date: 20041025
  Receipt Date: 20041025
  Transmission Date: 20050328
  Serious: Yes (Other)
  Sender: FDA-Public Use
  Company Number: None

PATIENT
  Age: 67 Year
  Sex: Male
  Weight: 86.1834 kg

DRUGS (1)
  1. OXYCODONE HCL [Suspect]
     Indication: INTERVERTEBRAL DISC DISORDER
     Dosage: ONE TAB TID YEARS

REACTIONS (1)
  - MIGRAINE [None]
